FAERS Safety Report 10952955 (Version 1)
Quarter: 2015Q1

REPORT INFORMATION
  Report Type: Spontaneous
  Country: US (occurrence: None)
  Receive Date: 20150324
  Receipt Date: 20150324
  Transmission Date: 20150721
  Serious: Yes (Life-Threatening)
  Sender: FDA-Public Use
  Company Number: None

PATIENT
  Age: 70 Year
  Sex: Male
  Weight: 195 kg

DRUGS (1)
  1. METHADONE [Suspect]
     Active Substance: METHADONE HYDROCHLORIDE
     Indication: PAIN
     Dosage: 10 MG 8 PER DAY TAKE TWICE DAILY MOUTH
     Route: 048

REACTIONS (8)
  - Confusional state [None]
  - Abnormal behaviour [None]
  - Suicidal ideation [None]
  - Product substitution issue [None]
  - Product quality issue [None]
  - Paranoia [None]
  - Speech disorder [None]
  - Flashback [None]

NARRATIVE: CASE EVENT DATE: 20141201
